FAERS Safety Report 11825514 (Version 1)
Quarter: 2015Q4

REPORT INFORMATION
  Report Type: Spontaneous
  Country: US (occurrence: US)
  Receive Date: 20151211
  Receipt Date: 20151211
  Transmission Date: 20160305
  Serious: Yes (Other)
  Sender: FDA-Public Use
  Company Number: US-JNJFOC-20151004700

PATIENT
  Age: 61 Year
  Sex: Male
  Weight: 63 kg

DRUGS (1)
  1. IBRUTINIB [Suspect]
     Active Substance: IBRUTINIB
     Indication: MANTLE CELL LYMPHOMA
     Route: 048
     Dates: start: 201406, end: 2014

REACTIONS (1)
  - Mantle cell lymphoma [Not Recovered/Not Resolved]

NARRATIVE: CASE EVENT DATE: 201410
